FAERS Safety Report 7913494 (Version 2)
Quarter: 2013Q1

REPORT INFORMATION
  Report Type: Spontaneous
  Country: US (occurrence: US)
  Receive Date: 20110425
  Receipt Date: 20130211
  Transmission Date: 20140127
  Serious: Yes (Other)
  Sender: FDA-Public Use
  Company Number: US-ASTRAZENECA-2011SE21995

PATIENT
  Age: 71 Year
  Sex: Male

DRUGS (11)
  1. NEXIUM [Suspect]
     Route: 048
  2. HYDROCHLOROTHIAZIDE\LISINOPRIL [Suspect]
     Dosage: 20/12.5 MG EVERY MORNING
     Route: 048
  3. ASPIRIN [Concomitant]
     Route: 048
  4. ATORVASTATIN [Concomitant]
     Route: 048
  5. FINASTERIDE [Concomitant]
     Route: 048
  6. METFORMIN [Concomitant]
     Route: 048
  7. METOPROLOL TARTRATE [Concomitant]
     Route: 048
  8. MULTIVITAMIN WITH MINERALS [Concomitant]
     Route: 048
  9. NIACIN ER [Concomitant]
     Route: 048
  10. VIAGRA [Concomitant]
     Dosage: 100 MG ONCE DAILY AS NEEDED ONE HOUR BEFORE INTERCOURSE
     Route: 048
  11. VITAMIN D3 [Concomitant]
     Route: 048

REACTIONS (10)
  - Lower limb fracture [Unknown]
  - Chest pain [Unknown]
  - Essential hypertension [Unknown]
  - Fatigue [Unknown]
  - Pain in extremity [Unknown]
  - Gastroenteritis salmonella [Unknown]
  - Dyspnoea [Unknown]
  - Cyst [Unknown]
  - Diarrhoea [Unknown]
  - Malaise [Unknown]
